FAERS Safety Report 9175352 (Version 2)
Quarter: 2013Q2

REPORT INFORMATION
  Report Type: Spontaneous
  Country: MX (occurrence: MX)
  Receive Date: 20130320
  Receipt Date: 20130410
  Transmission Date: 20140414
  Serious: Yes (Hospitalization, Disabling)
  Sender: FDA-Public Use
  Company Number: PHHY2013MX025949

PATIENT
  Age: 81 Year
  Sex: Male

DRUGS (7)
  1. CO-DIOVAN [Suspect]
     Indication: HYPERTENSION
     Dosage: 1DF (VALS 160MG+HCTZ 12.5 MG), DAILY
     Route: 048
     Dates: end: 201303
  2. DIOVAN [Suspect]
     Indication: HYPERTENSION
     Dosage: 1 DF, DAILY (80 MG VALS)
     Dates: end: 201303
  3. DIOVAN [Suspect]
     Indication: HYPERTENSION
  4. FINASTERIDE [Concomitant]
     Indication: PROSTATIC DISORDER
     Dosage: 1 UNK, DAILY
  5. GABAPENTIN [Concomitant]
     Indication: FEELING OF RELAXATION
     Dosage: 1 UKN, DAILY
  6. LANOXIN [Concomitant]
     Indication: BLOOD PRESSURE
     Dosage: 1 DF, Q72H
  7. DOSTEIN [Concomitant]
     Indication: INCREASED UPPER AIRWAY SECRETION
     Dosage: 1 UKN, DAILY

REACTIONS (4)
  - Pulmonary congestion [Recovered/Resolved]
  - Hypertension [Recovered/Resolved]
  - Gait disturbance [Not Recovered/Not Resolved]
  - Movement disorder [Not Recovered/Not Resolved]
